FAERS Safety Report 15272339 (Version 1)
Quarter: 2018Q3

REPORT INFORMATION
  Report Type: Spontaneous
  Country: US (occurrence: US)
  Receive Date: 20180813
  Receipt Date: 20180813
  Transmission Date: 20181010
  Serious: No
  Sender: FDA-Public Use
  Company Number: US-DEPOMED, INC.-US-2017DEP002106

PATIENT

DRUGS (1)
  1. CAMBIA [Suspect]
     Active Substance: DICLOFENAC POTASSIUM
     Indication: MIGRAINE
     Dosage: 50 MG, 1 PACKET WITH 1 TO 2 OUNCES OF WATER
     Route: 048
     Dates: start: 20170918, end: 2017

REACTIONS (2)
  - Sneezing [Unknown]
  - Product use in unapproved indication [Recovered/Resolved]

NARRATIVE: CASE EVENT DATE: 20170918
